FAERS Safety Report 17578270 (Version 1)
Quarter: 2020Q1

REPORT INFORMATION
  Report Type: Report from Study
  Country: NL (occurrence: NL)
  Receive Date: 20200324
  Receipt Date: 20200324
  Transmission Date: 20200409
  Serious: Yes (Other)
  Sender: FDA-Public Use
  Company Number: NL-MYLANLABS-2020M1031224

PATIENT
  Age: 49 Year
  Sex: Male

DRUGS (2)
  1. MESALAZINE [Concomitant]
     Active Substance: MESALAMINE
     Dosage: 3G, 1X/D
     Route: 048
     Dates: end: 20170621
  2. AZATHIOPRINE. [Suspect]
     Active Substance: AZATHIOPRINE
     Indication: COLITIS ULCERATIVE
     Dosage: UNK

REACTIONS (2)
  - Leukopenia [Recovered/Resolved]
  - Drug intolerance [Recovered/Resolved]

NARRATIVE: CASE EVENT DATE: 20161101
